FAERS Safety Report 4725476-1 (Version None)
Quarter: 2005Q3

REPORT INFORMATION
  Report Type: 
  Country: None (occurrence: None)
  Receive Date: 20050727
  Receipt Date: 20050721
  Transmission Date: 20060218
  Serious: Yes (Death)
  Sender: FDA-Public Use
  Company Number: PHEH2005US08076

PATIENT
  Age: 39 Year
  Sex: Female

DRUGS (2)
  1. ZELNORM [Suspect]
  2. METHADONE HCL [Concomitant]

REACTIONS (4)
  - ABDOMINAL PAIN [None]
  - CONSTIPATION [None]
  - DRUG ABUSER [None]
  - DRUG TOXICITY [None]
